FAERS Safety Report 6974297-8 (Version None)
Quarter: 2010Q3

REPORT INFORMATION
  Report Type: 
  Country: None (occurrence: None)
  Receive Date: 20100909
  Receipt Date: 20100826
  Transmission Date: 20110219
  Serious: Yes (Hospitalization)
  Sender: FDA-Public Use
  Company Number: PHHY2010US56389

PATIENT
  Sex: Female

DRUGS (4)
  1. TASIGNA [Suspect]
     Indication: LEUKAEMIA
     Dosage: 150 MG, FOUR TIME A DAY
  2. HYDREA [Suspect]
     Dosage: 2000 MG
  3. AZITHROMYCIN [Suspect]
     Dosage: 250 MG
  4. ESTROGENS [Concomitant]

REACTIONS (2)
  - COUGH [None]
  - RASH [None]
